FAERS Safety Report 16269904 (Version 1)
Quarter: 2019Q2

REPORT INFORMATION
  Report Type: Report from Study
  Country: IL (occurrence: IL)
  Receive Date: 20190503
  Receipt Date: 20190503
  Transmission Date: 20190711
  Serious: Yes (Hospitalization, Other)
  Sender: FDA-Public Use
  Company Number: IL-ACTELION-A-CH2018-171548

PATIENT
  Age: 77 Year
  Sex: Female

DRUGS (13)
  1. UPTRAVI [Suspect]
     Active Substance: SELEXIPAG
     Dosage: UNK UNK, BID
     Route: 048
     Dates: start: 20180201
  2. UPTRAVI [Suspect]
     Active Substance: SELEXIPAG
     Dosage: 1200 ?G, BID
     Route: 048
     Dates: start: 20180913, end: 20180930
  3. VASODIP [Concomitant]
     Active Substance: LERCANIDIPINE HYDROCHLORIDE
  4. VALSARTAN. [Concomitant]
     Active Substance: VALSARTAN
  5. UPTRAVI [Suspect]
     Active Substance: SELEXIPAG
     Dosage: 1000 ?G, BID
     Route: 048
     Dates: start: 20180426, end: 20180913
  6. UPTRAVI [Suspect]
     Active Substance: SELEXIPAG
     Dosage: UNK
     Route: 048
     Dates: end: 20190416
  7. PROPYLTHIOCIL [Concomitant]
  8. LOSEC [Concomitant]
     Active Substance: OMEPRAZOLE
  9. REVATIO [Concomitant]
     Active Substance: SILDENAFIL CITRATE
  10. UPTRAVI [Suspect]
     Active Substance: SELEXIPAG
     Indication: PULMONARY ARTERIAL HYPERTENSION
     Dosage: 1200 ?G, BID
     Route: 048
     Dates: end: 20180425
  11. REMODULIN [Concomitant]
     Active Substance: TREPROSTINIL
     Route: 042
  12. UPTRAVI [Suspect]
     Active Substance: SELEXIPAG
     Dosage: 1000 ?G, BID
     Route: 048
     Dates: start: 20180930, end: 20190411
  13. BE POSITIVE 906090 [Concomitant]

REACTIONS (19)
  - Spinal fracture [Unknown]
  - Condition aggravated [Not Recovered/Not Resolved]
  - Blood pressure increased [Not Recovered/Not Resolved]
  - Upper respiratory tract infection [Recovered/Resolved]
  - Pulmonary congestion [Not Recovered/Not Resolved]
  - Pulmonary arterial hypertension [Not Recovered/Not Resolved]
  - Dependence on oxygen therapy [Not Recovered/Not Resolved]
  - Arthralgia [Not Recovered/Not Resolved]
  - Pneumonia [Not Recovered/Not Resolved]
  - Bronchitis [Recovered/Resolved]
  - Oedema peripheral [Not Recovered/Not Resolved]
  - Dyspnoea [Not Recovered/Not Resolved]
  - Asthenia [Not Recovered/Not Resolved]
  - Abdominal pain upper [Recovered/Resolved]
  - Diarrhoea [Recovered/Resolved]
  - Pharyngitis [Recovered/Resolved]
  - Myalgia [Not Recovered/Not Resolved]
  - General physical health deterioration [Not Recovered/Not Resolved]
  - Pain in extremity [Recovering/Resolving]

NARRATIVE: CASE EVENT DATE: 201804
